FAERS Safety Report 23145410 (Version 2)
Quarter: 2024Q1

REPORT INFORMATION
  Report Type: Report from Study
  Country: US (occurrence: US)
  Receive Date: 20231103
  Receipt Date: 20240108
  Transmission Date: 20240410
  Serious: Yes (Hospitalization)
  Sender: FDA-Public Use
  Company Number: US-BAYER-2023A136519

PATIENT
  Age: 86 Year
  Sex: Female
  Weight: 63.492 kg

DRUGS (5)
  1. ADEMPAS [Suspect]
     Active Substance: RIOCIGUAT
     Indication: Pulmonary arterial hypertension
     Dosage: 0.5 MG, TID
     Route: 048
     Dates: start: 202309
  2. ADEMPAS [Suspect]
     Active Substance: RIOCIGUAT
     Indication: Pulmonary arterial hypertension
     Dosage: 1 MG, TID
     Route: 048
     Dates: start: 202310
  3. ADEMPAS [Suspect]
     Active Substance: RIOCIGUAT
     Indication: Pulmonary arterial hypertension
     Dosage: 2.5 MG, TID
     Route: 048
     Dates: start: 202311
  4. OPSUMIT [Concomitant]
     Active Substance: MACITENTAN
     Dosage: UNK
  5. AMLODIPINE [Concomitant]
     Active Substance: AMLODIPINE BESYLATE

REACTIONS (8)
  - Dyspnoea exertional [Recovering/Resolving]
  - Fluid retention [Recovering/Resolving]
  - Sluggishness [Recovering/Resolving]
  - Weight increased [None]
  - Fluid retention [Recovering/Resolving]
  - Blood pressure systolic decreased [Recovering/Resolving]
  - Hypotension [Recovering/Resolving]
  - Product dose omission issue [None]

NARRATIVE: CASE EVENT DATE: 20230901
